FAERS Safety Report 9211125 (Version 1)
Quarter: 2013Q2

REPORT INFORMATION
  Report Type: Spontaneous
  Country: IT (occurrence: IT)
  Receive Date: 20130404
  Receipt Date: 20130404
  Transmission Date: 20140414
  Serious: Yes (Other)
  Sender: FDA-Public Use
  Company Number: IT-BAXTER-2013BAX012667

PATIENT
  Sex: Female

DRUGS (2)
  1. ENDOXAN BAXTER [Suspect]
     Indication: CHRONIC MYELOID LEUKAEMIA
     Route: 065
  2. BUSULFAN [Suspect]
     Indication: CHRONIC MYELOID LEUKAEMIA
     Route: 065

REACTIONS (3)
  - Chronic myeloid leukaemia [Unknown]
  - Ear infection [Unknown]
  - Pyrexia [Unknown]
